FAERS Safety Report 18724572 (Version 2)
Quarter: 2021Q3

REPORT INFORMATION
  Report Type: Spontaneous
  Country: AR (occurrence: AR)
  Receive Date: 20210111
  Receipt Date: 20210727
  Transmission Date: 20211014
  Serious: Yes (Other)
  Sender: FDA-Public Use
  Company Number: AR-PFIZER INC-2021010258

PATIENT
  Age: 48 Year
  Sex: Male

DRUGS (1)
  1. XELJANZ [Suspect]
     Active Substance: TOFACITINIB CITRATE
     Indication: RHEUMATOID ARTHRITIS
     Dosage: 5 MG, 2X/DAY
     Dates: start: 20171201

REACTIONS (6)
  - Diabetes mellitus [Unknown]
  - Blood glucose increased [Unknown]
  - Arthropathy [Unknown]
  - Gait inability [Unknown]
  - Malaise [Unknown]
  - Visual impairment [Unknown]
